FAERS Safety Report 22615677 (Version 1)
Quarter: 2023Q2

REPORT INFORMATION
  Report Type: Spontaneous
  Country: US (occurrence: US)
  Receive Date: 20230619
  Receipt Date: 20230619
  Transmission Date: 20230722
  Serious: No
  Sender: FDA-Public Use
  Company Number: US-INSUD PHARMA-2306US03822

PATIENT

DRUGS (2)
  1. FOSFOMYCIN [Suspect]
     Active Substance: FOSFOMYCIN
     Indication: Infection
     Dosage: UNK
     Route: 048
     Dates: start: 202305
  2. FOSFOMYCIN [Suspect]
     Active Substance: FOSFOMYCIN
     Dosage: UNK
     Route: 048
     Dates: start: 202206

REACTIONS (6)
  - Drug ineffective for unapproved indication [Recovering/Resolving]
  - Urinary tract infection [Recovering/Resolving]
  - Incorrect dose administered [Unknown]
  - Poor quality product administered [Unknown]
  - Product solubility abnormal [Unknown]
  - Off label use [Unknown]

NARRATIVE: CASE EVENT DATE: 20220601
